FAERS Safety Report 4891557-5 (Version None)
Quarter: 2006Q1

REPORT INFORMATION
  Report Type: 
  Country: None (occurrence: None)
  Receive Date: 20060125
  Receipt Date: 20050321
  Transmission Date: 20060701
  Serious: Yes (Death)
  Sender: FDA-Public Use
  Company Number: US-MERCK-0503USA03962

PATIENT
  Age: 35 Year
  Sex: Male
  Weight: 89 kg

DRUGS (6)
  1. VIOXX [Suspect]
     Indication: BACK PAIN
     Route: 048
     Dates: end: 20020320
  2. VIOXX [Suspect]
     Route: 048
     Dates: start: 19990101
  3. VIOXX [Suspect]
     Route: 048
     Dates: start: 19990101
  4. VIOXX [Suspect]
     Indication: ARTHRITIS
     Route: 048
     Dates: end: 20020320
  5. VIOXX [Suspect]
     Route: 048
     Dates: start: 19990101
  6. VIOXX [Suspect]
     Route: 048
     Dates: start: 19990101

REACTIONS (4)
  - ACUTE MYOCARDIAL INFARCTION [None]
  - ARTERIOSCLEROSIS CORONARY ARTERY [None]
  - CHEST PAIN [None]
  - INSOMNIA [None]
